FAERS Safety Report 7784619-6 (Version None)
Quarter: 2011Q3

REPORT INFORMATION
  Report Type: 
  Country: None (occurrence: None)
  Receive Date: 20110926
  Receipt Date: 20110914
  Transmission Date: 20111222
  Serious: Yes (Death)
  Sender: FDA-Public Use
  Company Number: UTC-010218

PATIENT
  Age: 63 Year
  Sex: Female

DRUGS (1)
  1. REMODULIN [Suspect]
     Dates: start: 20110902, end: 20110906

REACTIONS (2)
  - LUNG DISORDER [None]
  - VENOOCCLUSIVE DISEASE [None]
